FAERS Safety Report 8834458 (Version 2)
Quarter: 2013Q2

REPORT INFORMATION
  Report Type: Report from Study
  Country: MX (occurrence: MX)
  Receive Date: 20121010
  Receipt Date: 20130510
  Transmission Date: 20140414
  Serious: Yes (Death, Other)
  Sender: FDA-Public Use
  Company Number: PHHY2012MX089392

PATIENT
  Age: 87 Year
  Sex: Female

DRUGS (2)
  1. CO-DIOVAN [Suspect]
     Indication: HYPERTENSION
     Dosage: 1 DF (160/12.5MG), UNK
     Dates: start: 200910
  2. PROPRANOLOL [Concomitant]
     Indication: HYPERTENSION
     Dosage: UNK UKN, UNK
     Dates: start: 200910

REACTIONS (4)
  - Cardiac arrest [Fatal]
  - Fall [Unknown]
  - Hip fracture [Unknown]
  - Blood pressure decreased [Unknown]
